FAERS Safety Report 4557316-8 (Version None)
Quarter: 2005Q1

REPORT INFORMATION
  Report Type: 
  Country: None (occurrence: None)
  Receive Date: 20050119
  Receipt Date: 20050119
  Transmission Date: 20050727
  Serious: Yes (Hospitalization)
  Sender: FDA-Public Use
  Company Number: None

PATIENT
  Sex: Female
  Weight: 53.0709 kg

DRUGS (2)
  1. PROCHLORPERAZINE [Suspect]
     Indication: VOMITING
     Dosage: 10 MG PO QID (6 DOSES GIVEN)
     Route: 048
     Dates: start: 20050115, end: 20050116
  2. PROPRANOLOL HYDROCHLORIDE [Concomitant]

REACTIONS (2)
  - DYSTONIA [None]
  - MEDICATION ERROR [None]
